FAERS Safety Report 4538577-8 (Version None)
Quarter: 2004Q4

REPORT INFORMATION
  Report Type: 
  Country: None (occurrence: None)
  Receive Date: 20041222
  Receipt Date: 20041208
  Transmission Date: 20050328
  Serious: Yes (Life-Threatening, Hospitalization)
  Sender: FDA-Public Use
  Company Number: BRO-008010

PATIENT
  Age: 71 Year
  Sex: Male

DRUGS (8)
  1. IOPAMIDOL-300 [Suspect]
     Indication: COMPUTERISED TOMOGRAM ABDOMEN
     Dosage: 100 ML IV
     Route: 042
     Dates: start: 20041122, end: 20041122
  2. IOPAMIDOL-300 [Suspect]
     Indication: PANCREATITIS
     Dosage: 100 ML IV
     Route: 042
     Dates: start: 20041122, end: 20041122
  3. FAMOTIDINE [Concomitant]
  4. CONIEL (BENIDIPINE  HYDROCHLORIDE) [Concomitant]
  5. LIPITOR [Concomitant]
  6. MERISLON (BETAHISTINE HYDROCHLORIDE) [Concomitant]
  7. ZOLPIDEM TARTRATE [Concomitant]
  8. FOIPAN (CAMOSTAT MESILATE) [Concomitant]

REACTIONS (6)
  - ABDOMINAL PAIN [None]
  - BLOOD PRESSURE SYSTOLIC DECREASED [None]
  - CHEST PAIN [None]
  - CONDITION AGGRAVATED [None]
  - NAUSEA [None]
  - PANCREATITIS [None]
